FAERS Safety Report 20856301 (Version 3)
Quarter: 2022Q3

REPORT INFORMATION
  Report Type: Report from Study
  Country: BR (occurrence: BR)
  Receive Date: 20220520
  Receipt Date: 20220705
  Transmission Date: 20221027
  Serious: Yes (Hospitalization, Other)
  Sender: FDA-Public Use
  Company Number: BR-ABBOTT-2021A-1330612

PATIENT
  Sex: Female
  Weight: 53 kg

DRUGS (25)
  1. SYNTHROID [Suspect]
     Active Substance: LEVOTHYROXINE SODIUM
     Indication: Thyroid hormone replacement therapy
     Route: 048
     Dates: start: 2005
  2. SYNTHROID [Suspect]
     Active Substance: LEVOTHYROXINE SODIUM
     Indication: Hyperthyroidism
     Dosage: DOSE USED 175MCG;
     Route: 048
     Dates: end: 2020
  3. SYNTHROID [Suspect]
     Active Substance: LEVOTHYROXINE SODIUM
     Route: 048
  4. SYNTHROID [Suspect]
     Active Substance: LEVOTHYROXINE SODIUM
     Dosage: DOSE 150MCG; ONGOING
     Route: 048
     Dates: start: 2020
  5. SYNTHROID [Suspect]
     Active Substance: LEVOTHYROXINE SODIUM
     Dosage: PATIENT USED 200MCG FOR SOME TIME
     Route: 048
  6. SYNTHROID [Suspect]
     Active Substance: LEVOTHYROXINE SODIUM
     Dosage: ON THE MORNING IN FASTING. DAILY DOSE: 150 MCG
     Route: 048
  7. SYNTHROID [Suspect]
     Active Substance: LEVOTHYROXINE SODIUM
     Route: 048
  8. SYNTHROID [Suspect]
     Active Substance: LEVOTHYROXINE SODIUM
     Dosage: TOOK THIS DOSAGE BEFORE CANCER
     Route: 048
  9. SYNTHROID [Suspect]
     Active Substance: LEVOTHYROXINE SODIUM
     Route: 048
  10. CREON [Suspect]
     Active Substance: PANCRELIPASE AMYLASE\PANCRELIPASE LIPASE\PANCRELIPASE PROTEASE
     Indication: Product used for unknown indication
     Route: 065
  11. CREON [Suspect]
     Active Substance: PANCRELIPASE AMYLASE\PANCRELIPASE LIPASE\PANCRELIPASE PROTEASE
     Dosage: CREON 10,000, SHE TOOK 2 AT LUNCH AND 2 AT DINNER
     Route: 065
     Dates: start: 20210705
  12. ESCITALOPRAM [Concomitant]
     Active Substance: ESCITALOPRAM OXALATE
     Indication: Depression
     Dosage: INITIAL DOSE: FORM STRENGTH 20MG; ADMINISTERED IN THE MORNING
     Route: 048
     Dates: start: 2010
  13. ESCITALOPRAM [Concomitant]
     Active Substance: ESCITALOPRAM OXALATE
     Dosage: FORM STRENGTH 10MG; USED FOR 1 YEAR AND A HALF; DOSE DECREASED
     Route: 048
  14. ESCITALOPRAM [Concomitant]
     Active Substance: ESCITALOPRAM OXALATE
     Dosage: HALF TABL OF 10MG;SINCE 6 MONTHS; DOSE WILL BE DECREASED TO ADMINISTERING EVERY OTHER DAY
     Route: 048
  15. ALPRAZOLAM [Concomitant]
     Active Substance: ALPRAZOLAM
     Indication: Sleep disorder therapy
     Dosage: INITIAL DOSE 2MG; DOSE DECREASED
     Route: 048
     Dates: start: 2013
  16. ALPRAZOLAM [Concomitant]
     Active Substance: ALPRAZOLAM
     Dosage: ONGOING; USED EVERY DAY, AT AROUND 15/20MIN BEFORE 2AM
     Route: 048
  17. MAGNESIUM [Concomitant]
     Active Substance: MAGNESIUM
     Indication: Mineral supplementation
  18. ZINC [Concomitant]
     Active Substance: ZINC
     Indication: Product used for unknown indication
  19. GLIFAGE [Concomitant]
     Active Substance: METFORMIN HYDROCHLORIDE
     Indication: Product used for unknown indication
  20. VITAMIN D [Concomitant]
     Active Substance: VITAMIN D NOS
     Indication: Vitamin supplementation
  21. METFORMIN [Concomitant]
     Active Substance: METFORMIN HYDROCHLORIDE
     Indication: Product used for unknown indication
  22. METFORMIN [Concomitant]
     Active Substance: METFORMIN HYDROCHLORIDE
     Dosage: AFTER SHE FOUND OUT ABOUT THE CANCER SHE HAD A DOSE CHANGE
  23. METFORMIN [Concomitant]
     Active Substance: METFORMIN HYDROCHLORIDE
     Dosage: AFTER SHE FOUND OUT ABOUT THE CANCER SHE HAD A DOSE CHANGE
  24. METFORMIN [Concomitant]
     Active Substance: METFORMIN HYDROCHLORIDE
     Dosage: AFTER SHE FOUND OUT ABOUT THE CANCER SHE HAD A DOSE CHANGE
  25. INSULIN NOS [Concomitant]
     Active Substance: INSULIN NOS
     Indication: Product used for unknown indication

REACTIONS (67)
  - Tachycardia [Unknown]
  - Thyroid cancer [Recovered/Resolved]
  - Thyroidectomy [Unknown]
  - Pancreatic carcinoma [Recovered/Resolved]
  - Myocardial infarction [Unknown]
  - Type 1 diabetes mellitus [Unknown]
  - Type 2 diabetes mellitus [Unknown]
  - Metastasis [Recovered/Resolved]
  - Cancer surgery [Unknown]
  - Bile duct cancer [Unknown]
  - Gallbladder operation [Unknown]
  - Precancerous condition [Recovered/Resolved]
  - Gastrointestinal polyp [Recovered/Resolved]
  - Hypothyroidism [Not Recovered/Not Resolved]
  - Asthenia [Not Recovered/Not Resolved]
  - Memory impairment [Unknown]
  - Hyperthyroidism [Unknown]
  - Tachycardia [Unknown]
  - Hyperthyroidism [Unknown]
  - Malaise [Not Recovered/Not Resolved]
  - Weight decreased [Unknown]
  - Agitation [Unknown]
  - Mood altered [Unknown]
  - Diplopia [Not Recovered/Not Resolved]
  - Exophthalmos [Recovering/Resolving]
  - Eye disorder [Not Recovered/Not Resolved]
  - Dry eye [Not Recovered/Not Resolved]
  - Visual impairment [Not Recovered/Not Resolved]
  - Altered visual depth perception [Not Recovered/Not Resolved]
  - Fumbling [Unknown]
  - Metabolic syndrome [Recovered/Resolved]
  - Blood glucose fluctuation [Unknown]
  - Blood cholesterol increased [Unknown]
  - Rheumatoid arthritis [Recovered/Resolved]
  - Pain in extremity [Recovered/Resolved]
  - Swelling [Recovered/Resolved]
  - Arthralgia [Unknown]
  - Pain in extremity [Unknown]
  - Pain in extremity [Unknown]
  - Diverticulum [Unknown]
  - Product dose omission issue [Unknown]
  - Road traffic accident [Unknown]
  - Fatigue [Not Recovered/Not Resolved]
  - Somnolence [Not Recovered/Not Resolved]
  - Weight increased [Not Recovered/Not Resolved]
  - Constipation [Not Recovered/Not Resolved]
  - Abdominal pain upper [Unknown]
  - Thyroid disorder [Unknown]
  - Weight fluctuation [Unknown]
  - Bedridden [Unknown]
  - Eructation [Not Recovered/Not Resolved]
  - Somnolence [Unknown]
  - Sneezing [Not Recovered/Not Resolved]
  - Diarrhoea [Unknown]
  - Premature ageing [Not Recovered/Not Resolved]
  - Nutritional condition abnormal [Unknown]
  - Laboratory test abnormal [Unknown]
  - Feelings of worthlessness [Unknown]
  - Tachycardia [Unknown]
  - Pain [Unknown]
  - Product storage error [Unknown]
  - Product use in unapproved indication [Unknown]
  - Abdominal distension [Unknown]
  - Muscle atrophy [Unknown]
  - Fall [Unknown]
  - Spinal fracture [Unknown]
  - Dizziness postural [Unknown]

NARRATIVE: CASE EVENT DATE: 20050101
